FAERS Safety Report 9733051 (Version 2)
Quarter: 2013Q4

REPORT INFORMATION
  Report Type: Spontaneous
  Country: US (occurrence: US)
  Receive Date: 20131204
  Receipt Date: 20131204
  Transmission Date: 20140711
  Serious: No
  Sender: FDA-Public Use
  Company Number: US-GILEAD-2009-0022408

PATIENT
  Sex: Male
  Weight: 69.85 kg

DRUGS (24)
  1. LETAIRIS [Suspect]
     Indication: PULMONARY ARTERIAL HYPERTENSION
     Route: 048
     Dates: start: 20090312, end: 20090519
  2. WARFARIN [Concomitant]
  3. PLAVIX [Concomitant]
  4. ASPIRIN [Concomitant]
  5. FUROSEMIDE [Concomitant]
  6. SPIRONOLACTONE [Concomitant]
  7. DIOVAN [Concomitant]
  8. COREG [Concomitant]
  9. IMDUR [Concomitant]
  10. NITROQUICK [Concomitant]
  11. ARICEPT [Concomitant]
  12. EXFORGE 5 [Concomitant]
  13. CRESTOR [Concomitant]
  14. STARLIX [Concomitant]
  15. TEKTURNA [Concomitant]
  16. GLYBURIDE [Concomitant]
  17. METFORMIN [Concomitant]
  18. LOVAZA [Concomitant]
  19. LYRICA [Concomitant]
  20. NAMENDA [Concomitant]
  21. JANUMET [Concomitant]
  22. TRIAMCINOLON CREAM [Concomitant]
  23. SINGULAIR [Concomitant]
  24. OSCAL 500 [Concomitant]

REACTIONS (2)
  - Dizziness [Unknown]
  - Presyncope [Unknown]
